FAERS Safety Report 6919304-3 (Version None)
Quarter: 2010Q3

REPORT INFORMATION
  Report Type: 
  Country: None (occurrence: None)
  Receive Date: 20100811
  Receipt Date: 20100730
  Transmission Date: 20110219
  Serious: Yes (Hospitalization)
  Sender: FDA-Public Use
  Company Number: A0866619A

PATIENT
  Age: 58 Year
  Sex: Male
  Weight: 126.8 kg

DRUGS (9)
  1. AVANDIA [Suspect]
     Indication: DIABETES MELLITUS
     Dosage: 8MG PER DAY
     Route: 048
     Dates: end: 20071001
  2. GLYBURIDE AND METFORMIN HYDROCHLORIDE [Concomitant]
  3. FLONASE [Concomitant]
  4. SPIRIVA [Concomitant]
  5. PULMICORT [Concomitant]
  6. ALBUTEROL [Concomitant]
  7. HYDROCODONE [Concomitant]
  8. VYTORIN [Concomitant]
  9. METOPROLOL [Concomitant]

REACTIONS (2)
  - CARDIAC FAILURE CONGESTIVE [None]
  - MYOCARDIAL INFARCTION [None]
